FAERS Safety Report 14782807 (Version 1)
Quarter: 2018Q2

REPORT INFORMATION
  Report Type: Spontaneous
  Country: GB (occurrence: GB)
  Receive Date: 20180420
  Receipt Date: 20180420
  Transmission Date: 20180711
  Serious: Yes (Disabling, Other)
  Sender: FDA-Public Use
  Company Number: GB-TORRENT-00016424

PATIENT
  Age: 13 Year
  Sex: Female
  Weight: 50 kg

DRUGS (7)
  1. CARBAMAZEPINE. [Concomitant]
     Active Substance: CARBAMAZEPINE
     Indication: TEMPORAL LOBE EPILEPSY
     Dosage: ONGOING
     Route: 048
     Dates: start: 20170602
  2. MELATONIN [Concomitant]
     Active Substance: MELATONIN
     Indication: POOR QUALITY SLEEP
     Dosage: ONGOING. AT NIGHT.
     Route: 048
     Dates: start: 20171116
  3. DOCUSATE SODIUM. [Concomitant]
     Active Substance: DOCUSATE SODIUM
     Indication: CONSTIPATION
     Dosage: ONGOING
     Route: 048
     Dates: start: 20170602
  4. TOPIRAMATE. [Concomitant]
     Active Substance: TOPIRAMATE
     Indication: TEMPORAL LOBE EPILEPSY
     Dosage: ONGOING
     Route: 048
     Dates: start: 20171121
  5. QUETIAPINE. [Suspect]
     Active Substance: QUETIAPINE
     Indication: PSYCHOTIC SYMPTOM
     Dosage: UNK
     Route: 048
     Dates: start: 20180111, end: 20180208
  6. SENNA [Concomitant]
     Active Substance: SENNA LEAF\SENNOSIDES\SENNOSIDES A AND B
     Indication: CONSTIPATION
     Dosage: ONGOING. WEEKDAYS.
     Route: 048
     Dates: start: 20180112
  7. LAXIDO [Concomitant]
     Active Substance: POLYETHYLENE GLYCOL 3350\POTASSIUM CHLORIDE\SODIUM BICARBONATE\SODIUM CHLORIDE
     Indication: CONSTIPATION
     Dosage: ONGOING
     Route: 048
     Dates: start: 20170607

REACTIONS (2)
  - Epilepsy [Recovered/Resolved]
  - Convulsive threshold lowered [Recovered/Resolved]
